FAERS Safety Report 10891814 (Version 2)
Quarter: 2015Q1

REPORT INFORMATION
  Report Type: Spontaneous
  Country: IT (occurrence: IT)
  Receive Date: 20150306
  Receipt Date: 20150309
  Transmission Date: 20150721
  Serious: Yes (Hospitalization)
  Sender: FDA-Public Use
  Company Number: IT-TEVA-544662ACC

PATIENT
  Age: 75 Year
  Sex: Male

DRUGS (40)
  1. ZOLPIDEM [Suspect]
     Active Substance: ZOLPIDEM\ZOLPIDEM TARTRATE
     Indication: HYPERTENSION
     Dosage: 5 MG DAILY
  2. LASIX [Suspect]
     Active Substance: FUROSEMIDE
     Indication: HYPERTENSION
     Dosage: 25 MG DAILY
  3. LASIX [Suspect]
     Active Substance: FUROSEMIDE
     Indication: HYPERCHOLESTEROLAEMIA
  4. KEPPRA [Suspect]
     Active Substance: LEVETIRACETAM
     Indication: EPILEPSY
  5. NORVASC [Suspect]
     Active Substance: AMLODIPINE BESYLATE
     Indication: HYPERTENSION
     Dosage: 5 MG DAILY
  6. NORVASC [Suspect]
     Active Substance: AMLODIPINE BESYLATE
     Indication: ANXIETY
  7. ZOLPIDEM [Suspect]
     Active Substance: ZOLPIDEM\ZOLPIDEM TARTRATE
     Indication: ANXIETY
  8. ZOLPIDEM [Suspect]
     Active Substance: ZOLPIDEM\ZOLPIDEM TARTRATE
     Indication: HYPERCHOLESTEROLAEMIA
  9. DILATREND - 6.25 MG COMPRESSE - ROCHE S.P.A. [Suspect]
     Active Substance: CARVEDILOL
     Indication: DRUG ABUSE
     Dosage: 50 MG TOTAL
     Route: 048
     Dates: start: 20150209, end: 20150209
  10. XANAX [Suspect]
     Active Substance: ALPRAZOLAM
     Indication: DRUG ABUSE
     Dosage: 4 MG TOTAL
     Route: 048
     Dates: start: 20150209, end: 20150209
  11. DILATREND - 6.25 MG COMPRESSE - ROCHE S.P.A. [Suspect]
     Active Substance: CARVEDILOL
     Indication: HYPERTENSION
     Dosage: 12.5 MILLIGRAM DAILY;
  12. SIVASTIN - 20 MG COMPRESSE RIVESTITE CON FILM [Suspect]
     Active Substance: SIMVASTATIN
     Indication: ANXIETY
  13. XANAX [Suspect]
     Active Substance: ALPRAZOLAM
     Indication: ANXIETY
  14. LANSOPRAZOLE. [Suspect]
     Active Substance: LANSOPRAZOLE
     Indication: DRUG ABUSE
     Dosage: 60 MG TOTAL; GASTRO-RESISTANT TABLET
     Route: 048
     Dates: start: 20150209, end: 20150209
  15. LASIX [Suspect]
     Active Substance: FUROSEMIDE
     Indication: EPILEPSY
  16. LASIX [Suspect]
     Active Substance: FUROSEMIDE
     Indication: ANXIETY
  17. XANAX [Suspect]
     Active Substance: ALPRAZOLAM
     Indication: EPILEPSY
  18. XANAX [Suspect]
     Active Substance: ALPRAZOLAM
     Indication: HYPERCHOLESTEROLAEMIA
  19. KEPPRA [Suspect]
     Active Substance: LEVETIRACETAM
     Indication: HYPERCHOLESTEROLAEMIA
  20. SIVASTIN - 20 MG COMPRESSE RIVESTITE CON FILM [Suspect]
     Active Substance: SIMVASTATIN
     Indication: HYPERTENSION
     Dosage: 20 MG DAILY
  21. LANSOPRAZOLE. [Suspect]
     Active Substance: LANSOPRAZOLE
     Indication: EPILEPSY
  22. LANSOPRAZOLE. [Suspect]
     Active Substance: LANSOPRAZOLE
     Indication: HYPERCHOLESTEROLAEMIA
  23. DILATREND - 6.25 MG COMPRESSE - ROCHE S.P.A. [Suspect]
     Active Substance: CARVEDILOL
     Indication: EPILEPSY
  24. DILATREND - 6.25 MG COMPRESSE - ROCHE S.P.A. [Suspect]
     Active Substance: CARVEDILOL
     Indication: ANXIETY
  25. LASIX [Suspect]
     Active Substance: FUROSEMIDE
     Indication: DRUG ABUSE
     Dosage: 100 MG TOTAL
     Route: 048
     Dates: start: 20150209, end: 20150209
  26. KEPPRA [Suspect]
     Active Substance: LEVETIRACETAM
     Indication: DRUG ABUSE
     Dosage: 2000 MG TOTAL
     Route: 048
     Dates: start: 20150209, end: 20150209
  27. KEPPRA [Suspect]
     Active Substance: LEVETIRACETAM
     Indication: HYPERTENSION
     Dosage: 50 MG DAILY
  28. LANSOPRAZOLE. [Suspect]
     Active Substance: LANSOPRAZOLE
     Indication: HYPERTENSION
     Dosage: 15 MG DAILY
  29. LANSOPRAZOLE. [Suspect]
     Active Substance: LANSOPRAZOLE
     Indication: ANXIETY
  30. ZOLPIDEM [Suspect]
     Active Substance: ZOLPIDEM\ZOLPIDEM TARTRATE
     Indication: EPILEPSY
  31. NORVASC [Suspect]
     Active Substance: AMLODIPINE BESYLATE
     Indication: EPILEPSY
  32. NORVASC [Suspect]
     Active Substance: AMLODIPINE BESYLATE
     Indication: HYPERCHOLESTEROLAEMIA
  33. SIVASTIN - 20 MG COMPRESSE RIVESTITE CON FILM [Suspect]
     Active Substance: SIMVASTATIN
     Indication: HYPERCHOLESTEROLAEMIA
  34. ZOLPIDEM [Suspect]
     Active Substance: ZOLPIDEM\ZOLPIDEM TARTRATE
     Indication: DRUG ABUSE
     Dosage: 40 MG TOTAL
     Route: 048
     Dates: start: 20150209, end: 20150209
  35. DILATREND - 6.25 MG COMPRESSE - ROCHE S.P.A. [Suspect]
     Active Substance: CARVEDILOL
     Indication: HYPERCHOLESTEROLAEMIA
  36. XANAX [Suspect]
     Active Substance: ALPRAZOLAM
     Indication: HYPERTENSION
     Dosage: 1 MILLIGRAM DAILY;
  37. KEPPRA [Suspect]
     Active Substance: LEVETIRACETAM
     Indication: ANXIETY
  38. NORVASC [Suspect]
     Active Substance: AMLODIPINE BESYLATE
     Indication: DRUG ABUSE
     Dosage: 20 MG TOTAL
     Route: 048
     Dates: start: 20150209, end: 20150209
  39. SIVASTIN - 20 MG COMPRESSE RIVESTITE CON FILM [Suspect]
     Active Substance: SIMVASTATIN
     Indication: DRUG ABUSE
     Dosage: 80 MG TOTAL
     Route: 048
     Dates: start: 20150209, end: 20150209
  40. SIVASTIN - 20 MG COMPRESSE RIVESTITE CON FILM [Suspect]
     Active Substance: SIMVASTATIN
     Indication: EPILEPSY

REACTIONS (2)
  - Drug abuse [Recovered/Resolved]
  - Syncope [Recovered/Resolved]

NARRATIVE: CASE EVENT DATE: 20150209
